FAERS Safety Report 16690037 (Version 3)
Quarter: 2019Q3

REPORT INFORMATION
  Report Type: Report from Study
  Country: US (occurrence: US)
  Receive Date: 20190809
  Receipt Date: 20190822
  Transmission Date: 20191004
  Serious: Yes (Hospitalization, Other)
  Sender: FDA-Public Use
  Company Number: US-BRISTOL-MYERS SQUIBB COMPANY-BMS-2019-077557

PATIENT
  Sex: Male
  Weight: 93 kg

DRUGS (6)
  1. METFORMIN [Concomitant]
     Active Substance: METFORMIN HYDROCHLORIDE
     Indication: HYPERGLYCAEMIA
     Dosage: 850 MILLIGRAM, BID
     Route: 065
     Dates: start: 20190625
  2. IRBESARTAN. [Concomitant]
     Active Substance: IRBESARTAN
     Indication: BLOOD PRESSURE MEASUREMENT
     Dosage: 300 MILLIGRAM
     Route: 065
     Dates: start: 20190220
  3. AMLODIPINE [Concomitant]
     Active Substance: AMLODIPINE BESYLATE
     Indication: BLOOD PRESSURE MEASUREMENT
     Dosage: 5 MILLIGRAM, QD
     Route: 065
     Dates: start: 20190703
  4. IPILIMUMAB [Suspect]
     Active Substance: IPILIMUMAB
     Indication: METASTATIC OCULAR MELANOMA
     Dosage: 93 MILLIGRAM/KILOGRAM
     Route: 042
     Dates: start: 20190715, end: 20190715
  5. ATORVASTATIN [Concomitant]
     Active Substance: ATORVASTATIN
     Indication: BLOOD CHOLESTEROL
     Dosage: 20 MILLIGRAM
     Route: 065
     Dates: start: 20190220
  6. NIVOLUMAB [Suspect]
     Active Substance: NIVOLUMAB
     Indication: METASTATIC OCULAR MELANOMA
     Dosage: 240 MILLIGRAM/KILOGRAM, Q2WK
     Route: 042
     Dates: start: 20190715, end: 20190715

REACTIONS (5)
  - Autoimmune thyroiditis [Unknown]
  - Hyperglycaemia [Recovered/Resolved]
  - Hepatic steatosis [Unknown]
  - Hyperthyroidism [Unknown]
  - Autoimmune hepatitis [Unknown]

NARRATIVE: CASE EVENT DATE: 20190802
